FAERS Safety Report 10761480 (Version 1)
Quarter: 2015Q1

REPORT INFORMATION
  Report Type: Spontaneous
  Country: US (occurrence: None)
  Receive Date: 20150203
  Receipt Date: 20150203
  Transmission Date: 20150721
  Serious: Yes (Life-Threatening, Hospitalization, Disabling)
  Sender: FDA-Public Use
  Company Number: None

PATIENT
  Age: 45 Year
  Sex: Male
  Weight: 81.65 kg

DRUGS (2)
  1. SALINE SOLUTION [Suspect]
     Active Substance: SODIUM CHLORIDE
     Indication: DEHYDRATION
     Dosage: SEVERAL BAGS, GIVEN OVER 11HRS, INTO A VEIN
     Dates: start: 20141219
  2. SALINE SOLUTION [Suspect]
     Active Substance: SODIUM CHLORIDE
     Indication: SURGERY
     Dosage: SEVERAL BAGS, GIVEN OVER 11HRS, INTO A VEIN
     Dates: start: 20141219

REACTIONS (2)
  - Disseminated intravascular coagulation [None]
  - Wrong drug administered [None]

NARRATIVE: CASE EVENT DATE: 20141219
